FAERS Safety Report 16694139 (Version 1)
Quarter: 2019Q3

REPORT INFORMATION
  Report Type: Spontaneous
  Country: MX (occurrence: MX)
  Receive Date: 20190812
  Receipt Date: 20190812
  Transmission Date: 20191004
  Serious: Yes (Hospitalization)
  Sender: FDA-Public Use
  Company Number: PHHY2019MX186075

PATIENT
  Sex: Male

DRUGS (2)
  1. NAPROXEN. [Suspect]
     Active Substance: NAPROXEN
     Indication: PRODUCT USED FOR UNKNOWN INDICATION
     Route: 065
  2. PARACETAMOL [Suspect]
     Active Substance: ACETAMINOPHEN
     Indication: PRODUCT USED FOR UNKNOWN INDICATION
     Route: 065

REACTIONS (8)
  - Streptococcal infection [Unknown]
  - Concomitant disease aggravated [Unknown]
  - Varicella [Unknown]
  - Fournier^s gangrene [Unknown]
  - Groin abscess [Unknown]
  - Staphylococcal skin infection [Unknown]
  - Perineal pain [Unknown]
  - Perineal disorder [Unknown]
